FAERS Safety Report 8029821-3 (Version None)
Quarter: 2012Q1

REPORT INFORMATION
  Report Type: 
  Country: None (occurrence: None)
  Receive Date: 20120109
  Receipt Date: 20120107
  Transmission Date: 20120608
  Serious: Yes (Other)
  Sender: FDA-Public Use
  Company Number: US-PFIZER INC-2012005011

PATIENT
  Sex: Female

DRUGS (2)
  1. ZOLOFT [Suspect]
     Dosage: UNK
  2. CHANTIX [Suspect]
     Dosage: UNK

REACTIONS (4)
  - FATIGUE [None]
  - ABNORMAL BEHAVIOUR [None]
  - EMPHYSEMA [None]
  - DEPRESSION [None]
